FAERS Safety Report 5277754-8 (Version None)
Quarter: 2007Q1

REPORT INFORMATION
  Report Type: 
  Country: None (occurrence: None)
  Receive Date: 20070327
  Receipt Date: 20070315
  Transmission Date: 20070707
  Serious: Yes (Other)
  Sender: FDA-Public Use
  Company Number: US-PFIZER INC-2006003352

PATIENT
  Sex: Female
  Weight: 63.5 kg

DRUGS (3)
  1. NEURONTIN [Suspect]
     Indication: PERIODIC LIMB MOVEMENT DISORDER
  2. NEURONTIN [Suspect]
     Indication: BACK PAIN
  3. OXYCONTIN [Concomitant]
     Indication: PAIN

REACTIONS (5)
  - CELLULITIS [None]
  - DRUG INEFFECTIVE [None]
  - GUN SHOT WOUND [None]
  - PAIN IN JAW [None]
  - SUICIDE ATTEMPT [None]
